FAERS Safety Report 7388612-7 (Version None)
Quarter: 2011Q2

REPORT INFORMATION
  Report Type: 
  Country: None (occurrence: None)
  Receive Date: 20110401
  Receipt Date: 20110325
  Transmission Date: 20111010
  Serious: Yes (Hospitalization)
  Sender: FDA-Public Use
  Company Number: DE-PFIZER INC-2011066827

PATIENT
  Age: 80 Year
  Sex: Female

DRUGS (3)
  1. REVATIO [Suspect]
     Dosage: UNK
     Dates: start: 20110101
  2. TRACLEER [Suspect]
     Dosage: 62.5 MG, UNK
     Dates: start: 20110118
  3. AMBRISENTAN [Suspect]
     Dosage: 5 MG, UNK
     Dates: start: 20110118

REACTIONS (2)
  - DRUG INEFFECTIVE [None]
  - DRUG INTOLERANCE [None]
